FAERS Safety Report 22363739 (Version 1)
Quarter: 2023Q2

REPORT INFORMATION
  Report Type: Report from Study
  Country: CA (occurrence: CA)
  Receive Date: 20230525
  Receipt Date: 20230525
  Transmission Date: 20230722
  Serious: Yes (Other)
  Sender: FDA-Public Use
  Company Number: CA-ABBVIE-5177982

PATIENT
  Age: 44 Year
  Sex: Female

DRUGS (2)
  1. RINVOQ [Suspect]
     Active Substance: UPADACITINIB
     Indication: Rheumatoid arthritis
     Route: 048
     Dates: start: 20230326
  2. CORTISONE [Suspect]
     Active Substance: CORTISONE
     Indication: Rheumatoid arthritis
     Route: 065
     Dates: start: 202305

REACTIONS (4)
  - Hysterectomy [Recovering/Resolving]
  - Rheumatoid arthritis [Unknown]
  - Flushing [Unknown]
  - Arthritis [Unknown]

NARRATIVE: CASE EVENT DATE: 20230401
